FAERS Safety Report 6507397-7 (Version None)
Quarter: 2009Q4

REPORT INFORMATION
  Report Type: 
  Country: None (occurrence: None)
  Receive Date: 20091221
  Receipt Date: 20091119
  Transmission Date: 20100525
  Serious: No
  Sender: FDA-Public Use
  Company Number: US-BAYER-200915724NA

PATIENT
  Sex: Female

DRUGS (1)
  1. YAZ [Suspect]
     Indication: CONTRACEPTION
     Route: 048
     Dates: start: 20080901

REACTIONS (4)
  - ABNORMAL WITHDRAWAL BLEEDING [None]
  - ADVERSE EVENT [None]
  - METRORRHAGIA [None]
  - NO ADVERSE EVENT [None]
